FAERS Safety Report 6347884-8 (Version None)
Quarter: 2009Q3

REPORT INFORMATION
  Report Type: 
  Country: None (occurrence: None)
  Receive Date: 20090910
  Receipt Date: 20081203
  Transmission Date: 20100115
  Serious: No
  Sender: FDA-Public Use
  Company Number: US-TYCO HEALTHCARE/MALLINCKRODT-T200802051

PATIENT

DRUGS (3)
  1. SODIUM IODIDE I 131 /THERAPY/ CAP [Suspect]
     Indication: THYROID NEOPLASM
     Dosage: 197.5 MCI, SINGLE
     Route: 048
     Dates: start: 20081201, end: 20081201
  2. DEXAMETHASONE [Concomitant]
     Dosage: 4 MG, QID
  3. PEPCID [Concomitant]
     Dosage: 20 MG, BID

REACTIONS (1)
  - LOCAL SWELLING [None]
